FAERS Safety Report 8409496-1 (Version None)
Quarter: 2012Q2

REPORT INFORMATION
  Report Type: 
  Country: None (occurrence: None)
  Receive Date: 20120531
  Receipt Date: 20120531
  Transmission Date: 20120825
  Serious: Yes (Hospitalization)
  Sender: FDA-Public Use
  Company Number: None

PATIENT
  Sex: Female
  Weight: 65.7716 kg

DRUGS (1)
  1. FOSAMAX [Suspect]
     Indication: OSTEOPOROSIS
     Dosage: 70MG 1 PER WEEK ORAL
     Route: 048
     Dates: start: 20051001, end: 20120101

REACTIONS (3)
  - BONE PAIN [None]
  - ARTHRALGIA [None]
  - FALL [None]
